FAERS Safety Report 26166385 (Version 2)
Quarter: 2025Q4

REPORT INFORMATION
  Report Type: Spontaneous
  Country: US (occurrence: US)
  Receive Date: 20251217
  Receipt Date: 20251219
  Transmission Date: 20260117
  Serious: No
  Sender: SANDOZ
  Company Number: US-SANDOZ-SDZ2025US094366

PATIENT
  Sex: Female

DRUGS (3)
  1. AVASTIN [Suspect]
     Active Substance: BEVACIZUMAB
     Indication: Product used for unknown indication
     Dosage: UNK
     Route: 065
  2. LEQVIO [Suspect]
     Active Substance: INCLISIRAN SODIUM
     Indication: Product used for unknown indication
     Dosage: UNK
     Route: 065
  3. TOPOTECAN [Suspect]
     Active Substance: TOPOTECAN HYDROCHLORIDE
     Indication: Product used for unknown indication
     Dosage: UNK
     Route: 065

REACTIONS (6)
  - Influenza like illness [Unknown]
  - Palpitations [Unknown]
  - Dyspnoea [Unknown]
  - Pain [Unknown]
  - Nausea [Unknown]
  - Fatigue [Unknown]
